FAERS Safety Report 12509785 (Version 7)
Quarter: 2016Q3

REPORT INFORMATION
  Report Type: Report from Study
  Country: TR (occurrence: TR)
  Receive Date: 20160629
  Receipt Date: 20160819
  Transmission Date: 20161109
  Serious: Yes (Hospitalization)
  Sender: FDA-Public Use
  Company Number: TR-ABBVIE-16P-161-1658936-00

PATIENT
  Age: 66 Year
  Sex: Female
  Weight: 70 kg

DRUGS (1)
  1. DUODOPA [Suspect]
     Active Substance: CARBIDOPA\LEVODOPA
     Indication: PARKINSON^S DISEASE
     Dosage: MORNING DOSE:4.3ML, CONTINUOUS DOSE: 2.9ML, EXTRA DOSE:1.5 ML
     Route: 050
     Dates: start: 20150217, end: 20160721

REACTIONS (7)
  - Constipation [Recovered/Resolved]
  - Enteritis infectious [Recovered/Resolved]
  - Gastrointestinal ulcer [Recovered/Resolved]
  - Duodenal ulcer [Not Recovered/Not Resolved]
  - Device dislocation [Unknown]
  - Vomiting [Recovered/Resolved]
  - Abdominal pain upper [Recovered/Resolved]

NARRATIVE: CASE EVENT DATE: 20160621
